FAERS Safety Report 6176726-9 (Version None)
Quarter: 2009Q2

REPORT INFORMATION
  Report Type: 
  Country: None (occurrence: None)
  Receive Date: 20090501
  Receipt Date: 20090422
  Transmission Date: 20091009
  Serious: Yes (Disabling, Other)
  Sender: FDA-Public Use
  Company Number: MX-ELI_LILLY_AND_COMPANY-MX200904005563

PATIENT
  Age: 74 Year
  Sex: Male
  Weight: 73 kg

DRUGS (2)
  1. HUMULIN N [Suspect]
     Indication: DIABETES MELLITUS
     Dosage: 40 IU, EACH MORNING
     Route: 058
     Dates: start: 19990101
  2. HUMULIN N [Suspect]
     Dosage: 15 IU, EACH EVENING
     Route: 058
     Dates: start: 19990101

REACTIONS (4)
  - FOOT AMPUTATION [None]
  - INJECTION SITE PAIN [None]
  - LOCALISED INFECTION [None]
  - WOUND [None]
